FAERS Safety Report 20161962 (Version 1)
Quarter: 2021Q4

REPORT INFORMATION
  Report Type: Spontaneous
  Country: PT (occurrence: PT)
  Receive Date: 20211208
  Receipt Date: 20211208
  Transmission Date: 20220303
  Serious: Yes (Other)
  Sender: FDA-Public Use
  Company Number: PT-NOVARTISPH-NVSC2021PT278084

PATIENT
  Age: 27 Year
  Sex: Female

DRUGS (3)
  1. RISPERIDONE [Suspect]
     Active Substance: RISPERIDONE
     Indication: Product used for unknown indication
     Dosage: 9 MG, QD
     Route: 065
  2. LITHIUM [Concomitant]
     Active Substance: LITHIUM
     Indication: Product used for unknown indication
     Dosage: 400 MG, QD
     Route: 065
  3. LITHIUM [Concomitant]
     Active Substance: LITHIUM
     Dosage: 400 MG, QD
     Route: 065

REACTIONS (1)
  - Oculogyric crisis [Unknown]
